FAERS Safety Report 10235249 (Version 2)
Quarter: 2014Q3

REPORT INFORMATION
  Report Type: Spontaneous
  Country: US (occurrence: US)
  Receive Date: 20140613
  Receipt Date: 20140701
  Transmission Date: 20150326
  Serious: Yes (Hospitalization, Other)
  Sender: FDA-Public Use
  Company Number: US-B.I. PHARMACEUTICALS,INC./RIDGEFIELD-2014-BI-26020BP

PATIENT
  Sex: Female
  Weight: 64 kg

DRUGS (6)
  1. PANTOPRAZOLE [Concomitant]
     Active Substance: PANTOPRAZOLE SODIUM
     Indication: ABDOMINAL DISCOMFORT
     Dosage: 40 MG
     Route: 048
  2. SPIRIVA [Suspect]
     Active Substance: TIOTROPIUM BROMIDE MONOHYDRATE
     Indication: CHRONIC OBSTRUCTIVE PULMONARY DISEASE
     Dosage: 18 MCG
     Route: 055
     Dates: start: 2005
  3. MONTELUKAST [Concomitant]
     Active Substance: MONTELUKAST SODIUM
     Indication: SECRETION DISCHARGE
     Dosage: 10 MG
     Route: 048
  4. PREDISONE [Concomitant]
     Active Substance: PREDNISONE
     Indication: COUGH
     Dosage: 20 MG
     Route: 048
  5. ADVAIR HFA [Concomitant]
     Active Substance: FLUTICASONE PROPIONATE\SALMETEROL XINAFOATE
     Indication: CHRONIC OBSTRUCTIVE PULMONARY DISEASE
     Route: 055
     Dates: start: 2005
  6. PREDISONE [Concomitant]
     Active Substance: PREDNISONE
     Indication: PULMONARY CONGESTION

REACTIONS (9)
  - Diarrhoea [Recovered/Resolved]
  - Abdominal distension [Not Recovered/Not Resolved]
  - Abasia [Recovered/Resolved]
  - Glaucoma [Not Recovered/Not Resolved]
  - Weight increased [Not Recovered/Not Resolved]
  - Lung hyperinflation [Not Recovered/Not Resolved]
  - Dyspnoea [Recovered/Resolved]
  - Tremor [Not Recovered/Not Resolved]
  - Polyp [Recovered/Resolved]

NARRATIVE: CASE EVENT DATE: 2005
